FAERS Safety Report 10280181 (Version 1)
Quarter: 2014Q3

REPORT INFORMATION
  Report Type: Spontaneous
  Country: US (occurrence: None)
  Receive Date: 20140701
  Receipt Date: 20140701
  Transmission Date: 20150326
  Serious: Yes (Life-Threatening)
  Sender: FDA-Public Use
  Company Number: None

PATIENT
  Age: 62 Year
  Sex: Female
  Weight: 53.07 kg

DRUGS (2)
  1. LAMOTRIGINE 25 MG GENERIC [Suspect]
     Active Substance: LAMOTRIGINE
     Indication: SLEEP DISORDER
     Dosage: 2   ONCE DAILY  TAKEN BY MOUTH
     Route: 048
     Dates: start: 20140504, end: 20140522
  2. LAMOTRIGINE 25 MG GENERIC [Suspect]
     Active Substance: LAMOTRIGINE
     Indication: DEPRESSION
     Dosage: 2   ONCE DAILY  TAKEN BY MOUTH
     Route: 048
     Dates: start: 20140504, end: 20140522

REACTIONS (14)
  - Pruritus [None]
  - Urticaria [None]
  - Anxiety [None]
  - Gait disturbance [None]
  - Skin exfoliation [None]
  - Mouth ulceration [None]
  - Peripheral swelling [None]
  - Vision blurred [None]
  - Muscle spasms [None]
  - Erythema [None]
  - Rash [None]
  - Nasal ulcer [None]
  - Oropharyngeal pain [None]
  - Sunburn [None]

NARRATIVE: CASE EVENT DATE: 20140522
